FAERS Safety Report 13555138 (Version 2)
Quarter: 2017Q2

REPORT INFORMATION
  Report Type: Other
  Country: US (occurrence: US)
  Receive Date: 20170517
  Receipt Date: 20170615
  Transmission Date: 20170830
  Serious: Yes (Life-Threatening, Hospitalization, Other)
  Sender: FDA-Public Use
  Company Number: US-ACORDA-ACO_137917_2017

PATIENT
  Age: 66 Year
  Sex: Female

DRUGS (2)
  1. AMPYRA [Suspect]
     Active Substance: DALFAMPRIDINE
     Indication: PRODUCT USED FOR UNKNOWN INDICATION
     Dosage: UNK
     Route: 065
  2. TYSABRI [Suspect]
     Active Substance: NATALIZUMAB
     Indication: PRODUCT USED FOR UNKNOWN INDICATION
     Dosage: UNK
     Route: 065

REACTIONS (9)
  - Hypotension [Recovered/Resolved]
  - Escherichia infection [Recovered/Resolved]
  - Septic shock [Recovered/Resolved]
  - Respiratory failure [Recovered/Resolved]
  - Hypoglycaemia [Recovered/Resolved]
  - Clostridium test positive [Unknown]
  - Acidosis [Unknown]
  - Pneumonia pneumococcal [Recovered/Resolved]
  - Mental disorder [Recovered/Resolved]

NARRATIVE: CASE EVENT DATE: 20161228
